FAERS Safety Report 10597274 (Version 1)
Quarter: 2014Q4

REPORT INFORMATION
  Report Type: Spontaneous
  Country: DE (occurrence: DE)
  Receive Date: 20141121
  Receipt Date: 20141121
  Transmission Date: 20150529
  Serious: Yes (Other)
  Sender: FDA-Public Use
  Company Number: DE-ROCHE-1494220

PATIENT
  Sex: Male

DRUGS (2)
  1. BENDAMUSTINE [Concomitant]
     Active Substance: BENDAMUSTINE
     Indication: NON-HODGKIN^S LYMPHOMA
  2. MABTHERA [Suspect]
     Active Substance: RITUXIMAB
     Indication: NON-HODGKIN^S LYMPHOMA
     Dosage: RITUXIMAB 100 MG LOT NO. H0160B07, MABTHERA 500 MG LOT NO. 07005B01.
     Route: 042

REACTIONS (2)
  - Febrile convulsion [Unknown]
  - Hypersensitivity [Unknown]
